FAERS Safety Report 6566726-9 (Version None)
Quarter: 2010Q1

REPORT INFORMATION
  Report Type: 
  Country: None (occurrence: None)
  Receive Date: 20100202
  Receipt Date: 20100126
  Transmission Date: 20100710
  Serious: Yes (Other)
  Sender: FDA-Public Use
  Company Number: GR-MYLANLABS-2010S1000916

PATIENT
  Age: 78 Year
  Sex: Female

DRUGS (4)
  1. SOTALOL HCL [Suspect]
     Indication: ARRHYTHMIA
     Route: 048
     Dates: start: 20100116
  2. DIGOXIN [Concomitant]
     Indication: ARRHYTHMIA
     Route: 048
     Dates: start: 20100116
  3. CLOPIDOGREL [Concomitant]
     Indication: ARRHYTHMIA
     Route: 048
     Dates: start: 20100116
  4. DALZAD [Concomitant]
     Indication: ARRHYTHMIA
     Route: 048
     Dates: start: 20100116

REACTIONS (3)
  - CHEST DISCOMFORT [None]
  - PAIN IN EXTREMITY [None]
  - POLLAKIURIA [None]
